FAERS Safety Report 5390868-7 (Version None)
Quarter: 2007Q3

REPORT INFORMATION
  Report Type: 
  Country: None (occurrence: None)
  Receive Date: 20070716
  Receipt Date: 20070703
  Transmission Date: 20080115
  Serious: Yes (Hospitalization)
  Sender: FDA-Public Use
  Company Number: GXKR2007PL05792

PATIENT
  Age: 53 Year
  Sex: Female
  Weight: 90 kg

DRUGS (2)
  1. KETOPROFEN [Suspect]
     Indication: PAIN
     Dosage: TID, TOPICAL
     Route: 061
     Dates: start: 20070528, end: 20070529
  2. OLFEN (DICLOFENAC SODIUM) [Concomitant]

REACTIONS (3)
  - BLISTER [None]
  - DERMATITIS CONTACT [None]
  - WOUND SECRETION [None]
